FAERS Safety Report 24462239 (Version 1)
Quarter: 2024Q4

REPORT INFORMATION
  Report Type: Report from Study
  Country: US (occurrence: US)
  Receive Date: 20241018
  Receipt Date: 20241018
  Transmission Date: 20250115
  Serious: No
  Sender: ROCHE
  Company Number: US-ROCHE-3579211

PATIENT
  Age: 52 Year
  Sex: Female

DRUGS (9)
  1. RITUXAN [Suspect]
     Active Substance: RITUXIMAB
     Indication: Multiple sclerosis
     Route: 065
  2. ASPIRIN [Concomitant]
     Active Substance: ASPIRIN
  3. BACLOFEN [Concomitant]
     Active Substance: BACLOFEN
  4. ERGOCAL [Concomitant]
  5. FLONASE [Concomitant]
     Active Substance: FLUTICASONE PROPIONATE
  6. ADVIL [Concomitant]
     Active Substance: IBUPROFEN
  7. LORATADINE [Concomitant]
     Active Substance: LORATADINE
  8. MOBIC [Concomitant]
     Active Substance: MELOXICAM
  9. DITROPAN [Concomitant]
     Active Substance: OXYBUTYNIN CHLORIDE

REACTIONS (16)
  - Paraesthesia [Unknown]
  - Demyelination [Unknown]
  - Fatigue [Unknown]
  - Back pain [Unknown]
  - Neurogenic bladder [Unknown]
  - Neck pain [Unknown]
  - Obstructive sleep apnoea syndrome [Unknown]
  - Micturition urgency [Unknown]
  - Lymphodepletion [Unknown]
  - Vitamin B12 deficiency [Unknown]
  - Vitamin D deficiency [Unknown]
  - Obesity [Unknown]
  - Immunosuppression [Unknown]
  - Arthralgia [Unknown]
  - Hypoaesthesia [Unknown]
  - Sensory disturbance [Unknown]
